FAERS Safety Report 13924004 (Version 2)
Quarter: 2017Q3

REPORT INFORMATION
  Report Type: Spontaneous
  Country: JP (occurrence: JP)
  Receive Date: 20170831
  Receipt Date: 20170913
  Transmission Date: 20171127
  Serious: Yes (Other)
  Sender: FDA-Public Use
  Company Number: JP-CIPLA LTD.-2017JP15222

PATIENT

DRUGS (4)
  1. IRINOTECAN [Suspect]
     Active Substance: IRINOTECAN
     Indication: NEUROENDOCRINE CARCINOMA
     Dosage: 60 MG/M2, CYCLICAL, DAYS 1, 8 AND 15, EVERY 28 DAYS
     Route: 065
     Dates: start: 201505
  2. CISPLATIN. [Suspect]
     Active Substance: CISPLATIN
     Indication: NEUROENDOCRINE CARCINOMA
     Dosage: 60 MG/M2, CYCLICAL, DAY 1, EVERY 28 DAYS
     Route: 065
     Dates: start: 201505
  3. CISPLATIN. [Suspect]
     Active Substance: CISPLATIN
     Dosage: 50 MG/M2, CYCLICAL, DAY 1, EVERY 28 DAYS
     Route: 065
     Dates: start: 201505
  4. IRINOTECAN [Suspect]
     Active Substance: IRINOTECAN
     Dosage: 50 MG/M2, CYCLICAL, DAYS 1 AND 8 EVERY 28 DAYS
     Route: 065
     Dates: start: 201505

REACTIONS (9)
  - Neutropenia [Recovered/Resolved]
  - Decreased appetite [Unknown]
  - Vomiting [Unknown]
  - Thrombocytopenia [Unknown]
  - Fatigue [Unknown]
  - Tumour lysis syndrome [Recovered/Resolved]
  - Agranulocytosis [Unknown]
  - Anaemia [Unknown]
  - Febrile neutropenia [Unknown]

NARRATIVE: CASE EVENT DATE: 2015
